FAERS Safety Report 23631802 (Version 3)
Quarter: 2025Q1

REPORT INFORMATION
  Report Type: Spontaneous
  Country: US (occurrence: US)
  Receive Date: 20240314
  Receipt Date: 20250227
  Transmission Date: 20250408
  Serious: Yes (Hospitalization, Other)
  Sender: AMGEN
  Company Number: US-AMGEN-USASP2024049427

PATIENT
  Age: 67 Year
  Sex: Female
  Weight: 113 kg

DRUGS (11)
  1. XGEVA [Suspect]
     Active Substance: DENOSUMAB
     Indication: Breast cancer
     Route: 065
     Dates: start: 201807
  2. XGEVA [Suspect]
     Active Substance: DENOSUMAB
     Indication: Breast cancer metastatic
  3. IBRANCE [Suspect]
     Active Substance: PALBOCICLIB
     Indication: Breast cancer
     Dosage: 75 MILLIGRAM, QD (TAKE 1 TABLET (75MG TOTAL) BY MOUTH DAILY FOR 21 DAYS ON DAYS 1-21 FOLLOWED BY 7 D
     Route: 048
     Dates: start: 201807
  4. IBRANCE [Suspect]
     Active Substance: PALBOCICLIB
     Indication: Breast cancer metastatic
     Dosage: 75 MILLIGRAM, QD (TAKE 1 TABLET (75MG TOTAL) BY MOUTH DAILY FOR 21 DAYS ON DAYS 1-21 FOLLOWED BY 7 D
     Route: 048
     Dates: start: 20230712, end: 20231128
  5. IBRANCE [Suspect]
     Active Substance: PALBOCICLIB
     Dosage: 75 MILLIGRAM, QD (TAKE 1 TABLET (75MG TOTAL) BY MOUTH DAILY FOR 21 DAYS ON DAYS 1-21 FOLLOWED BY 7 D
     Route: 048
     Dates: start: 20230714
  6. IBRANCE [Suspect]
     Active Substance: PALBOCICLIB
     Dosage: 75 MILLIGRAM, QD (TAKE 1 TABLET (75MG TOTAL) BY MOUTH DAILY FOR 21 DAYS ON DAYS 1-21 FOLLOWED BY 7 D
     Route: 048
     Dates: start: 20231110, end: 20231202
  7. PALBOCICLIB [Suspect]
     Active Substance: PALBOCICLIB
     Indication: Breast cancer
     Dosage: 75 MILLIGRAM, QD (75MG DAILY ON DAYS 1-21)
     Route: 065
     Dates: start: 201807
  8. PALBOCICLIB [Suspect]
     Active Substance: PALBOCICLIB
     Indication: Breast cancer metastatic
  9. LETROZOLE [Suspect]
     Active Substance: LETROZOLE
     Indication: Breast cancer metastatic
     Route: 065
     Dates: start: 201807
  10. LETROZOLE [Suspect]
     Active Substance: LETROZOLE
     Indication: Breast cancer
     Route: 065
     Dates: start: 20190915
  11. GABAPENTIN [Concomitant]
     Active Substance: GABAPENTIN
     Route: 065
     Dates: start: 20230522

REACTIONS (12)
  - Diverticulitis [Recovering/Resolving]
  - Neutropenia [Unknown]
  - Anion gap increased [Unknown]
  - Haemoglobin decreased [Unknown]
  - Haematocrit decreased [Unknown]
  - Red blood cell count decreased [Unknown]
  - Mean cell volume increased [Unknown]
  - Eosinophil count decreased [Unknown]
  - Basophil count decreased [Unknown]
  - White blood cell count decreased [Unknown]
  - Hepatic steatosis [Unknown]
  - Back pain [Unknown]
